FAERS Safety Report 5413475-6 (Version None)
Quarter: 2007Q3

REPORT INFORMATION
  Report Type: 
  Country: None (occurrence: None)
  Receive Date: 20070814
  Receipt Date: 20070803
  Transmission Date: 20080115
  Serious: Yes (Other)
  Sender: FDA-Public Use
  Company Number: GB-JNJFOC-20070800995

PATIENT
  Age: 60 Year
  Sex: Male

DRUGS (9)
  1. REMICADE [Suspect]
     Indication: RHEUMATOID ARTHRITIS
     Route: 042
  2. ETANERCEPT [Suspect]
     Indication: RHEUMATOID ARTHRITIS
  3. CO-DYDRAMOL [Concomitant]
  4. PREDNISOLONE [Concomitant]
  5. CALCICHEW [Concomitant]
  6. METHOTREXATE [Concomitant]
  7. FOLIC ACID [Concomitant]
  8. VENTOLIN [Concomitant]
  9. BECOTIDE [Concomitant]

REACTIONS (2)
  - MALIGNANT NEOPLASM OF THORAX [None]
  - METASTASES TO CENTRAL NERVOUS SYSTEM [None]
